FAERS Safety Report 6835312-5 (Version None)
Quarter: 2010Q3

REPORT INFORMATION
  Report Type: 
  Country: None (occurrence: None)
  Receive Date: 20100713
  Receipt Date: 20100710
  Transmission Date: 20110219
  Serious: Yes (Other)
  Sender: FDA-Public Use
  Company Number: US-JNJFOC-20100603316

PATIENT
  Age: 48 Year
  Sex: Female
  Weight: 61.24 kg

DRUGS (3)
  1. LEVAQUIN [Suspect]
     Indication: BRONCHITIS BACTERIAL
     Route: 048
  2. NEXIUM [Concomitant]
     Indication: GASTROOESOPHAGEAL REFLUX DISEASE
     Route: 048
  3. ORTHO TRI-CYCLEN LO [Concomitant]
     Indication: CONTRACEPTION
     Route: 048

REACTIONS (3)
  - AGITATION [None]
  - ANAPHYLACTIC REACTION [None]
  - HYPERHIDROSIS [None]
